FAERS Safety Report 23096568 (Version 2)
Quarter: 2023Q4

REPORT INFORMATION
  Report Type: Spontaneous
  Country: US (occurrence: US)
  Receive Date: 20231023
  Receipt Date: 20231129
  Transmission Date: 20240110
  Serious: No
  Sender: FDA-Public Use
  Company Number: US-GSKCCFUS-Case-01832249_AE-102406

PATIENT
  Sex: Female

DRUGS (1)
  1. BENLYSTA [Suspect]
     Active Substance: BELIMUMAB
     Indication: Product used for unknown indication
     Dosage: 200 MG/ML, QD
     Route: 058

REACTIONS (4)
  - Bedridden [Unknown]
  - Accidental exposure to product [Unknown]
  - Product administration error [Unknown]
  - Product complaint [Unknown]
